FAERS Safety Report 26171604 (Version 1)
Quarter: 2025Q4

REPORT INFORMATION
  Report Type: Report from Study
  Country: US (occurrence: US)
  Receive Date: 20251217
  Receipt Date: 20251217
  Transmission Date: 20260118
  Serious: Yes (Other)
  Sender: OTSUKA
  Company Number: US-MMM-Otsuka-KHC69Z31

PATIENT
  Age: 65 Year
  Sex: Female
  Weight: 113 kg

DRUGS (16)
  1. TOLVAPTAN [Suspect]
     Active Substance: TOLVAPTAN
     Indication: Congenital cystic kidney disease
     Dosage: 45 MG, QD (IN THE MORNING)
     Route: 061
     Dates: start: 20250711, end: 20251118
  2. TOLVAPTAN [Suspect]
     Active Substance: TOLVAPTAN
     Dosage: 15 MG, QD (8 H LATER)
     Route: 061
     Dates: start: 20250711, end: 20251118
  3. NORVASC [Concomitant]
     Active Substance: AMLODIPINE BESYLATE
     Indication: Product used for unknown indication
     Dosage: 1 DF, QD  (10 MG 1 TABLET ONE TIME EACH DAY)
     Route: 061
  4. ST JOSEPH [Concomitant]
     Indication: Product used for unknown indication
     Dosage: 81 MG, QD
     Route: 061
  5. LIPITOR [Concomitant]
     Active Substance: ATORVASTATIN CALCIUM
     Indication: Product used for unknown indication
     Dosage: 20 MG, QD
     Route: 061
  6. VITAMIN D3 [Concomitant]
     Active Substance: CHOLECALCIFEROL
     Indication: Vitamin D deficiency
     Dosage: 2 DF, QD (1000 UT)
     Route: 061
  7. EPOETIN ALFA-EPBX [Concomitant]
     Active Substance: EPOETIN ALFA-EPBX
     Indication: Product used for unknown indication
     Dosage: UNK [(20000 UNIT/ML) EVERY 30 DAYS]
  8. HYDRALAZINE [Concomitant]
     Active Substance: HYDRALAZINE HYDROCHLORIDE
     Indication: Product used for unknown indication
     Dosage: 1 DF, QD (25 MG 1 TABLET IN THE MORNING)
     Route: 061
  9. HYDRALAZINE [Concomitant]
     Active Substance: HYDRALAZINE HYDROCHLORIDE
     Dosage: 1 DF, QD (25 MG 1 TABLET IN THE EVENING)
     Route: 061
  10. HYDRALAZINE [Concomitant]
     Active Substance: HYDRALAZINE HYDROCHLORIDE
     Indication: Product used for unknown indication
     Dosage: 1 DF, QD (50 MG 1 TABLET IN THE MORNING)
     Route: 061
  11. HYDRALAZINE [Concomitant]
     Active Substance: HYDRALAZINE HYDROCHLORIDE
     Dosage: 1 DF, QD (50 MG 1 TABLET IN THE EVENING)
     Route: 061
  12. MAGNESIUM [Concomitant]
     Active Substance: MAGNESIUM
     Indication: Product used for unknown indication
     Dosage: 1 DF, QD (250 MG 1 TABLET ONE TIME EACH DAY)
     Route: 061
  13. TOPROL XL [Concomitant]
     Active Substance: METOPROLOL SUCCINATE
     Indication: Product used for unknown indication
     Dosage: 1 DF, QD (25MG IN THE MORNING)
     Route: 061
  14. TOPROL XL [Concomitant]
     Active Substance: METOPROLOL SUCCINATE
     Dosage: 1 DF, QD (25MG IN THE EVENING)
     Route: 061
  15. SODIUM BICAR [Concomitant]
     Indication: Product used for unknown indication
     Dosage: 1 DF, QD (650 MG 1 TABLET ONE TIME EACH DAY)
     Route: 061
  16. ROCALTROL [Concomitant]
     Active Substance: CALCITRIOL
     Indication: Vitamin D deficiency
     Dosage: 1 DF, TIW (0.25 MCG 3 TIMES WEEKLY MONDAY, WEDNESDAY AND FRIDAY MORNING)
     Route: 061
     Dates: start: 20251119

REACTIONS (4)
  - Hepatic fibrosis [Unknown]
  - Hepatic lesion [Unknown]
  - Polydipsia [Not Recovered/Not Resolved]
  - Pollakiuria [Not Recovered/Not Resolved]

NARRATIVE: CASE EVENT DATE: 20250711
